FAERS Safety Report 13642500 (Version 1)
Quarter: 2017Q2

REPORT INFORMATION
  Report Type: Spontaneous
  Country: US (occurrence: US)
  Receive Date: 20170612
  Receipt Date: 20170612
  Transmission Date: 20170830
  Serious: No
  Sender: FDA-Public Use
  Company Number: US-GLAXOSMITHKLINE-US2017087118

PATIENT
  Age: 84 Year
  Sex: Female

DRUGS (5)
  1. BREO ELLIPTA [Suspect]
     Active Substance: FLUTICASONE FUROATE\VILANTEROL TRIFENATATE
     Indication: SINUS DISORDER
     Dosage: 1 PUFF(S), QD
     Dates: start: 20170523, end: 20170526
  2. BREO ELLIPTA [Suspect]
     Active Substance: FLUTICASONE FUROATE\VILANTEROL TRIFENATATE
     Indication: BRONCHIECTASIS
  3. BREO ELLIPTA [Suspect]
     Active Substance: FLUTICASONE FUROATE\VILANTEROL TRIFENATATE
     Indication: DYSPNOEA
  4. ASTALIN [Concomitant]
     Active Substance: AZELASTINE HYDROCHLORIDE
  5. FLUTICASONE NASAL SPRAY [Concomitant]
     Active Substance: FLUTICASONE

REACTIONS (4)
  - Product use in unapproved indication [Unknown]
  - Performance status decreased [Recovering/Resolving]
  - Feeling abnormal [Unknown]
  - Euphoric mood [Recovering/Resolving]

NARRATIVE: CASE EVENT DATE: 201705
